FAERS Safety Report 9290846 (Version 1)
Quarter: 2013Q2

REPORT INFORMATION
  Report Type: Spontaneous
  Country: US (occurrence: US)
  Receive Date: 20130515
  Receipt Date: 20130515
  Transmission Date: 20140414
  Serious: Yes (Hospitalization)
  Sender: FDA-Public Use
  Company Number: US-BAYER-2013-057711

PATIENT
  Age: 43 Year
  Sex: Female
  Weight: 122.45 kg

DRUGS (10)
  1. YASMIN [Suspect]
  2. OCELLA [Suspect]
  3. HYDROCHLOROTHIAZIDE [Concomitant]
  4. LEVAQUIN [Concomitant]
  5. NORVASC [Concomitant]
  6. OXYCONTIN [Concomitant]
  7. PROMETHAZINE [Concomitant]
  8. PERCOCET [Concomitant]
  9. LEVOTHYROXINE [Concomitant]
  10. TESSALON PERLES [Concomitant]

REACTIONS (2)
  - Pulmonary embolism [Recovering/Resolving]
  - Deep vein thrombosis [Recovered/Resolved]
